FAERS Safety Report 25728463 (Version 2)
Quarter: 2025Q3

REPORT INFORMATION
  Report Type: Spontaneous
  Country: US (occurrence: US)
  Receive Date: 20250826
  Receipt Date: 20250903
  Transmission Date: 20251021
  Serious: Yes (Other)
  Sender: PFIZER
  Company Number: US-PFIZER INC-202500168346

PATIENT
  Age: 52 Year
  Sex: Male

DRUGS (2)
  1. ADCETRIS [Suspect]
     Active Substance: BRENTUXIMAB VEDOTIN
     Dosage: 165 MG, EVERY 3 WEEKS
     Dates: start: 20240906
  2. ADCETRIS [Suspect]
     Active Substance: BRENTUXIMAB VEDOTIN
     Dates: start: 20250625

REACTIONS (5)
  - Malignant neoplasm progression [Unknown]
  - Hernia [Recovered/Resolved]
  - Localised infection [Recovered/Resolved]
  - Skin lesion [Unknown]
  - Off label use [Unknown]

NARRATIVE: CASE EVENT DATE: 20250225
